FAERS Safety Report 25362015 (Version 1)
Quarter: 2025Q2

REPORT INFORMATION
  Report Type: Spontaneous
  Country: FR (occurrence: FR)
  Receive Date: 20250527
  Receipt Date: 20250527
  Transmission Date: 20250717
  Serious: Yes (Death, Other)
  Sender: RANBAXY
  Company Number: FR-SUN PHARMACEUTICAL INDUSTRIES INC-2025R1-508271

PATIENT
  Age: 46 Year
  Sex: Female

DRUGS (2)
  1. IVERMECTIN [Suspect]
     Active Substance: IVERMECTIN
     Indication: Strongyloidiasis
  2. IVERMECTIN [Suspect]
     Active Substance: IVERMECTIN
     Route: 058

REACTIONS (2)
  - Oedema [Fatal]
  - Cerebral haemorrhage [Fatal]
